FAERS Safety Report 10170627 (Version 4)
Quarter: 2016Q3

REPORT INFORMATION
  Report Type: Report from Study
  Country: FR (occurrence: FR)
  Receive Date: 20140514
  Receipt Date: 20160831
  Transmission Date: 20161108
  Serious: Yes (Hospitalization, Other)
  Sender: FDA-Public Use
  Company Number: FR-ROCHE-1164860

PATIENT
  Age: 75 Year
  Sex: Female

DRUGS (7)
  1. PARACETAMOL [Concomitant]
     Active Substance: ACETAMINOPHEN
  2. RITUXIMAB [Suspect]
     Active Substance: RITUXIMAB
     Indication: RHEUMATOID ARTHRITIS
     Route: 042
     Dates: start: 20090114
  3. TARDYFERON (FRANCE) [Concomitant]
  4. FOSAVANCE [Concomitant]
     Active Substance: ALENDRONATE SODIUM\CHOLECALCIFEROL
  5. RITUXIMAB [Suspect]
     Active Substance: RITUXIMAB
     Route: 042
     Dates: start: 20090128, end: 20111104
  6. FORLAX [Concomitant]
     Active Substance: POLYETHYLENE GLYCOL 4000
  7. CORTANCYL [Concomitant]
     Active Substance: PREDNISONE
     Route: 065

REACTIONS (14)
  - Abscess soft tissue [Recovered/Resolved]
  - General physical health deterioration [Recovered/Resolved]
  - Back pain [Recovered/Resolved]
  - Cardiac failure [Recovered/Resolved]
  - Haematoma [Recovered/Resolved]
  - Fall [Unknown]
  - Device related infection [Recovered/Resolved]
  - Spinal compression fracture [Recovered/Resolved]
  - Pulmonary embolism [Unknown]
  - Renal failure [Recovered/Resolved]
  - Overdose [Unknown]
  - Pubis fracture [Unknown]
  - Pneumonia [Recovered/Resolved]
  - Eschar [Not Recovered/Not Resolved]

NARRATIVE: CASE EVENT DATE: 20091008
